FAERS Safety Report 20783530 (Version 3)
Quarter: 2022Q2

REPORT INFORMATION
  Report Type: Report from Study
  Country: US (occurrence: US)
  Receive Date: 20220504
  Receipt Date: 20220513
  Transmission Date: 20220720
  Serious: No
  Sender: FDA-Public Use
  Company Number: US-NOVARTISTESTPH-NVSC2022US101965

PATIENT
  Age: 71 Year
  Sex: Female

DRUGS (1)
  1. KESIMPTA [Suspect]
     Active Substance: OFATUMUMAB
     Indication: Product used for unknown indication
     Dosage: 20 MG, QMO
     Route: 058
     Dates: start: 20210924, end: 20220511

REACTIONS (11)
  - Fatigue [Unknown]
  - Weight increased [Unknown]
  - Erythema [Recovered/Resolved]
  - Tongue erythema [Unknown]
  - Glossodynia [Unknown]
  - Visual impairment [Unknown]
  - Cough [Unknown]
  - Rhinorrhoea [Unknown]
  - Diplopia [Unknown]
  - Skin discolouration [Unknown]
  - Vision blurred [Recovered/Resolved]

NARRATIVE: CASE EVENT DATE: 20220411
